FAERS Safety Report 11715062 (Version 10)
Quarter: 2016Q2

REPORT INFORMATION
  Report Type: Spontaneous
  Country: US (occurrence: US)
  Receive Date: 20151109
  Receipt Date: 20160512
  Transmission Date: 20160815
  Serious: Yes (Hospitalization, Other)
  Sender: FDA-Public Use
  Company Number: US-BAUSCH-BL-2015-019927

PATIENT
  Age: 39 Year
  Sex: Female

DRUGS (15)
  1. RUCONEST [Suspect]
     Active Substance: HUMAN C1-ESTERASE INHIBITOR
     Route: 042
     Dates: start: 20150928, end: 20150928
  2. RUCONEST [Suspect]
     Active Substance: HUMAN C1-ESTERASE INHIBITOR
     Route: 042
     Dates: start: 20160323
  3. RUCONEST [Suspect]
     Active Substance: HUMAN C1-ESTERASE INHIBITOR
     Dosage: AS NEEDED
     Route: 042
     Dates: start: 201510
  4. RUCONEST [Suspect]
     Active Substance: HUMAN C1-ESTERASE INHIBITOR
     Route: 042
     Dates: start: 20150908, end: 20150908
  5. RUCONEST [Suspect]
     Active Substance: HUMAN C1-ESTERASE INHIBITOR
     Route: 042
     Dates: start: 20160324
  6. RUCONEST [Suspect]
     Active Substance: HUMAN C1-ESTERASE INHIBITOR
     Route: 042
     Dates: start: 20150926, end: 20150926
  7. RUCONEST [Suspect]
     Active Substance: HUMAN C1-ESTERASE INHIBITOR
     Route: 042
     Dates: start: 20151006, end: 20151006
  8. RUCONEST [Suspect]
     Active Substance: HUMAN C1-ESTERASE INHIBITOR
     Route: 042
     Dates: start: 20151201, end: 20151201
  9. RUCONEST [Suspect]
     Active Substance: HUMAN C1-ESTERASE INHIBITOR
     Dosage: AS NEEDED
     Route: 042
     Dates: start: 201509
  10. RUCONEST [Suspect]
     Active Substance: HUMAN C1-ESTERASE INHIBITOR
     Route: 042
     Dates: start: 20160125, end: 20160125
  11. RUCONEST [Suspect]
     Active Substance: HUMAN C1-ESTERASE INHIBITOR
     Route: 042
     Dates: start: 20160221
  12. FIRAZYR [Concomitant]
     Active Substance: ICATIBANT ACETATE
     Indication: HEREDITARY ANGIOEDEMA
     Dates: start: 20160324
  13. RUCONEST [Suspect]
     Active Substance: HUMAN C1-ESTERASE INHIBITOR
     Indication: HEREDITARY ANGIOEDEMA
     Dosage: AS NEEDED
     Route: 042
     Dates: start: 20150813, end: 20150813
  14. RUCONEST [Suspect]
     Active Substance: HUMAN C1-ESTERASE INHIBITOR
     Dosage: AS NEEDED
     Route: 042
     Dates: start: 20151008, end: 20151008
  15. FIRAZYR [Concomitant]
     Active Substance: ICATIBANT ACETATE
     Indication: HEREDITARY ANGIOEDEMA
     Dates: start: 20160325

REACTIONS (10)
  - Abnormal faeces [Unknown]
  - Upper respiratory tract infection [Unknown]
  - Device related infection [Unknown]
  - Lung infection [Unknown]
  - Sinusitis [Unknown]
  - Diarrhoea [Not Recovered/Not Resolved]
  - Pneumonia [Recovered/Resolved]
  - Drug ineffective [Unknown]
  - Constipation [Unknown]
  - Migraine [Recovered/Resolved]

NARRATIVE: CASE EVENT DATE: 2015
